FAERS Safety Report 17906601 (Version 1)
Quarter: 2020Q2

REPORT INFORMATION
  Report Type: Spontaneous
  Country: US (occurrence: US)
  Receive Date: 20200616
  Receipt Date: 20200616
  Transmission Date: 20200714
  Serious: No
  Sender: FDA-Public Use
  Company Number: US-ROCHE-2557824

PATIENT
  Sex: Female
  Weight: 62.65 kg

DRUGS (1)
  1. ACTEMRA [Suspect]
     Active Substance: TOCILIZUMAB
     Indication: TEMPORAL ARTERITIS
     Dosage: EVERY WEEK ON MONDAY ;ONGOING: YES
     Route: 058
     Dates: start: 20191201

REACTIONS (2)
  - Syringe issue [Unknown]
  - Incorrect dose administered [Unknown]
